FAERS Safety Report 9610657 (Version 1)
Quarter: 2013Q4

REPORT INFORMATION
  Report Type: Spontaneous
  Country: US (occurrence: US)
  Receive Date: 20131009
  Receipt Date: 20131009
  Transmission Date: 20140711
  Serious: Yes (Hospitalization)
  Sender: FDA-Public Use
  Company Number: US-BAYER-2013-121798

PATIENT
  Age: 16 Year
  Sex: Female

DRUGS (7)
  1. YAZ [Suspect]
  2. PLEXION [Concomitant]
  3. TAZORAC [Concomitant]
  4. FINACEA [Concomitant]
     Dosage: 15 %, UNK
  5. PREDNISONE [Concomitant]
     Dosage: 20 MG, UNK
  6. KETOROLAC [Concomitant]
  7. VICODIN [Concomitant]

REACTIONS (1)
  - Cerebrovascular accident [None]
